FAERS Safety Report 16902955 (Version 2)
Quarter: 2019Q4

REPORT INFORMATION
  Report Type: Spontaneous
  Country: GB (occurrence: GB)
  Receive Date: 20191010
  Receipt Date: 20191014
  Transmission Date: 20200122
  Serious: Yes (Life-Threatening, Hospitalization, Other)
  Sender: FDA-Public Use
  Company Number: GB-STRIDES ARCOLAB LIMITED-2019SP009642

PATIENT
  Age: 57 Year
  Sex: Male
  Weight: 80 kg

DRUGS (4)
  1. VANCOMYCIN [Suspect]
     Active Substance: VANCOMYCIN
     Indication: ENDOCARDITIS
     Dosage: UNK
     Route: 042
  2. PIPERACILLIN/TAZOBACTAM [Concomitant]
     Active Substance: PIPERACILLIN SODIUM\TAZOBACTAM SODIUM
     Indication: PRODUCT USED FOR UNKNOWN INDICATION
     Dosage: UNK
     Route: 065
  3. METRONIDAZOLE. [Concomitant]
     Active Substance: METRONIDAZOLE
     Indication: PRODUCT USED FOR UNKNOWN INDICATION
     Dosage: UNK
     Route: 065
  4. FLUCLOXACILLIN [Concomitant]
     Active Substance: FLUCLOXACILLIN
     Indication: ENDOCARDITIS
     Dosage: UNK
     Route: 042

REACTIONS (9)
  - Abdominal pain upper [Recovered/Resolved]
  - Lymphadenopathy [Recovered/Resolved]
  - Pyrexia [Recovered/Resolved]
  - Drug reaction with eosinophilia and systemic symptoms [Recovered/Resolved]
  - Rash pruritic [Recovered/Resolved]
  - Rash maculo-papular [Recovered/Resolved]
  - Hypoxia [Recovered/Resolved]
  - Transaminases increased [Recovered/Resolved]
  - Diarrhoea [Recovered/Resolved]
